FAERS Safety Report 8651558 (Version 3)
Quarter: 2012Q4

REPORT INFORMATION
  Report Type: 
  Country: US (occurrence: US)
  Receive Date: 20120706
  Receipt Date: 20121218
  Transmission Date: 20130627
  Serious: Yes (Hospitalization, Disabling)
  Sender: FDA-Public Use
  Company Number: US-BAYER-2012-065085

PATIENT
  Age: 42 Year
  Sex: Female
  Weight: 55.33 kg

DRUGS (9)
  1. YASMIN [Suspect]
     Indication: CONTRACEPTION
     Dosage: UNK
     Dates: start: 200202, end: 20060410
  2. YASMIN [Suspect]
     Indication: MENSTRUAL CYCLE MANAGEMENT
     Dosage: UNK
  3. YASMIN [Suspect]
     Indication: CONTRACEPTION
  4. METFORMIN ER [Concomitant]
     Dosage: 500 mg, UNK
     Dates: start: 20060103, end: 20060321
  5. DHEA [Concomitant]
  6. CLARITIN [Concomitant]
  7. FIBERCON [Concomitant]
  8. ALEVE [Concomitant]
     Indication: PAIN
  9. MELATONIN [Concomitant]
     Indication: SLEEPING SICKNESS
     Dosage: UNK; daily
     Dates: start: 2005

REACTIONS (11)
  - Carotid artery stenosis [Recovered/Resolved]
  - Embolic stroke [None]
  - Carotid artery dissection [None]
  - Injury [None]
  - Pain [None]
  - Deformity [None]
  - Anxiety [None]
  - Anhedonia [None]
  - Headache [None]
  - Cognitive disorder [None]
  - Speech disorder [None]
